FAERS Safety Report 17262647 (Version 1)
Quarter: 2019Q4

REPORT INFORMATION
  Report Type: Spontaneous
  Country: US (occurrence: US)
  Receive Date: 20191218
  Receipt Date: 20191218
  Transmission Date: 20200122
  Serious: Yes (Hospitalization)
  Sender: FDA-Public Use
  Company Number: None

PATIENT
  Age: 1 Year
  Sex: Female

DRUGS (1)
  1. NEUPOGEN [Suspect]
     Active Substance: FILGRASTIM
     Indication: BONE CANCER
     Dosage: ?          OTHER FREQUENCY:24-36HR AFTER CHEM;?
     Route: 058

REACTIONS (5)
  - Gastroenteritis viral [None]
  - Vomiting [None]
  - Pyrexia [None]
  - Diarrhoea [None]
  - Nasopharyngitis [None]

NARRATIVE: CASE EVENT DATE: 20191202
